APPROVED DRUG PRODUCT: SODIUM CHLORIDE 0.9% IN PLASTIC CONTAINER
Active Ingredient: SODIUM CHLORIDE
Strength: 900MG/100ML
Dosage Form/Route: SOLUTION;IRRIGATION
Application: A213688 | Product #001 | TE Code: AT
Applicant: FRESENIUS KABI USA LLC
Approved: Jun 24, 2024 | RLD: No | RS: No | Type: RX